FAERS Safety Report 5592000-3 (Version None)
Quarter: 2008Q1

REPORT INFORMATION
  Report Type: 
  Country: None (occurrence: None)
  Receive Date: 20080115
  Receipt Date: 20080108
  Transmission Date: 20080703
  Serious: Yes (Hospitalization, Other)
  Sender: FDA-Public Use
  Company Number: JP-ASTRAZENECA-2007AP08064

PATIENT
  Age: 75 Year
  Sex: Female
  Weight: 41 kg

DRUGS (4)
  1. IRESSA [Suspect]
     Indication: LUNG ADENOCARCINOMA
     Route: 048
     Dates: start: 20060412, end: 20060529
  2. IRESSA [Suspect]
     Route: 048
     Dates: start: 20070412, end: 20071025
  3. THEO-DUR [Concomitant]
     Route: 048
     Dates: start: 20050124
  4. KIPRES [Concomitant]
     Route: 048
     Dates: start: 20050124

REACTIONS (2)
  - INTERSTITIAL LUNG DISEASE [None]
  - LIVER DISORDER [None]
